FAERS Safety Report 6677810-3 (Version None)
Quarter: 2010Q2

REPORT INFORMATION
  Report Type: 
  Country: None (occurrence: None)
  Receive Date: 20100412
  Receipt Date: 20100325
  Transmission Date: 20101027
  Serious: No
  Sender: FDA-Public Use
  Company Number: US-ALEXION-A201000360

PATIENT
  Sex: Female

DRUGS (1)
  1. SOLIRIS [Suspect]
     Dosage: UNK

REACTIONS (1)
  - EYE HAEMORRHAGE [None]
